FAERS Safety Report 7320891-4 (Version None)
Quarter: 2011Q1

REPORT INFORMATION
  Report Type: 
  Country: None (occurrence: None)
  Receive Date: 20110228
  Receipt Date: 20110218
  Transmission Date: 20110831
  Serious: Yes (Hospitalization, Other)
  Sender: FDA-Public Use
  Company Number: JP-MERCK-1102USA00104

PATIENT
  Age: 80 Year
  Sex: Male
  Weight: 88 kg

DRUGS (10)
  1. OLMETEC [Suspect]
     Indication: HYPERTENSION
     Route: 048
     Dates: start: 20061004, end: 20110124
  2. METHYCOBAL [Concomitant]
     Indication: NEUROPATHY PERIPHERAL
     Route: 048
     Dates: start: 20020910
  3. JUVELA N [Concomitant]
     Indication: INTERMITTENT CLAUDICATION
     Route: 048
     Dates: start: 20020910
  4. MEZOLMIN [Concomitant]
     Indication: HYPERTENSION
     Route: 048
     Dates: start: 20020910
  5. AMOBAN [Concomitant]
     Route: 048
     Dates: start: 20030318
  6. PEPCID RPD [Suspect]
     Indication: GASTRIC ULCER
     Route: 048
     Dates: start: 20080109, end: 20110124
  7. LULU A NEW TABLETS [Suspect]
     Indication: UPPER RESPIRATORY TRACT INFLAMMATION
     Route: 048
     Dates: start: 20110124, end: 20110125
  8. AMLODIPINE BESYLATE [Concomitant]
     Indication: HYPERTENSION
     Route: 048
     Dates: start: 20020910
  9. MERISLON [Concomitant]
     Indication: DIZZINESS
     Route: 048
     Dates: start: 20020910
  10. PRORENAL [Concomitant]
     Indication: LUMBAR SPINAL STENOSIS
     Route: 048
     Dates: start: 20060510

REACTIONS (1)
  - RHABDOMYOLYSIS [None]
